FAERS Safety Report 8961370 (Version 1)
Quarter: 2012Q4

REPORT INFORMATION
  Report Type: 
  Country: US (occurrence: US)
  Receive Date: 20121213
  Receipt Date: 20121213
  Transmission Date: 20130627
  Serious: No
  Sender: FDA-Public Use
  Company Number: US-ALLERGAN-1208004US

PATIENT
  Age: 17 Year
  Sex: Female

DRUGS (2)
  1. ACZONE [Suspect]
     Indication: ACNE
     Dosage: thin smear to face in the morning
     Route: 061
     Dates: start: 201204
  2. ZIANA [Concomitant]
     Indication: ACNE
     Dosage: thin smear to face, qhs
     Route: 061
     Dates: start: 201106

REACTIONS (1)
  - Drug ineffective [Unknown]
